FAERS Safety Report 25797227 (Version 1)
Quarter: 2025Q3

REPORT INFORMATION
  Report Type: Spontaneous
  Country: US (occurrence: US)
  Receive Date: 20250912
  Receipt Date: 20250912
  Transmission Date: 20251021
  Serious: Yes (Life-Threatening, Hospitalization)
  Sender: B. BRAUN MEDICAL INC.
  Company Number: US-MLMSERVICE-20250819-PI613874-00089-7

PATIENT
  Age: 83 Year
  Sex: Female

DRUGS (9)
  1. CEFTRIAXONE [Suspect]
     Active Substance: CEFTRIAXONE
     Indication: Urinary tract infection
  2. CARBOPLATIN [Concomitant]
     Active Substance: CARBOPLATIN
     Indication: Adenocarcinoma
  3. CARBOPLATIN [Concomitant]
     Active Substance: CARBOPLATIN
     Indication: Sarcomatoid carcinoma of the lung
  4. PEMBROLIZUMAB [Concomitant]
     Active Substance: PEMBROLIZUMAB
     Indication: Adenocarcinoma
  5. PEMBROLIZUMAB [Concomitant]
     Active Substance: PEMBROLIZUMAB
     Indication: Sarcomatoid carcinoma of the lung
  6. PEMETREXED [Concomitant]
     Active Substance: PEMETREXED
     Indication: Adenocarcinoma
  7. PEMETREXED [Concomitant]
     Active Substance: PEMETREXED
     Indication: Sarcomatoid carcinoma of the lung
  8. PEGFILGRASTIM [Concomitant]
     Active Substance: PEGFILGRASTIM
     Indication: Adenocarcinoma
  9. PEGFILGRASTIM [Concomitant]
     Active Substance: PEGFILGRASTIM
     Indication: Sarcomatoid carcinoma of the lung

REACTIONS (2)
  - Large intestine infection [Recovered/Resolved]
  - Staphylococcal infection [Recovered/Resolved]
